FAERS Safety Report 25036780 (Version 1)
Quarter: 2025Q1

REPORT INFORMATION
  Report Type: Report from Study
  Country: GB (occurrence: GB)
  Receive Date: 20250304
  Receipt Date: 20250304
  Transmission Date: 20250409
  Serious: Yes (Other)
  Sender: SAMSUNG BIOEPIS
  Company Number: GB-SAMSUNG BIOEPIS-SB-2025-07413

PATIENT
  Age: 53 Year
  Sex: Female

DRUGS (1)
  1. IMRALDI [Suspect]
     Active Substance: ADALIMUMAB
     Indication: Behcet^s syndrome
     Dosage: 40 MG/0.8 ML;
     Route: 058

REACTIONS (5)
  - Lower respiratory tract infection [Unknown]
  - Malaise [Unknown]
  - Ear infection [Unknown]
  - Off label use [Unknown]
  - Product storage error [Unknown]
